FAERS Safety Report 7145710-0 (Version None)
Quarter: 2010Q4

REPORT INFORMATION
  Report Type: 
  Country: None (occurrence: None)
  Receive Date: 20101123
  Receipt Date: 20101109
  Transmission Date: 20110411
  Serious: Yes (Other)
  Sender: FDA-Public Use
  Company Number: JPI-P-012963

PATIENT
  Age: 37 Year
  Sex: Female

DRUGS (2)
  1. XYREM [Suspect]
     Indication: NARCOLEPSY
     Dosage: 5 GM (2.5 GM,2 IN 1 D),ORAL ; 11 GM (5.5 GM,2 IN 1 D),ORAL
     Route: 048
     Dates: start: 20080304, end: 20080101
  2. XYREM [Suspect]
     Indication: NARCOLEPSY
     Dosage: 5 GM (2.5 GM,2 IN 1 D),ORAL ; 11 GM (5.5 GM,2 IN 1 D),ORAL
     Route: 048
     Dates: start: 20080729

REACTIONS (1)
  - HYSTERECTOMY [None]
